FAERS Safety Report 22215829 (Version 1)
Quarter: 2023Q2

REPORT INFORMATION
  Report Type: Other
  Country: GB (occurrence: GB)
  Receive Date: 20230417
  Receipt Date: 20230417
  Transmission Date: 20230722
  Serious: Yes (Other)
  Sender: FDA-Public Use
  Company Number: GB-CELLTRION INC.-2023GB007747

PATIENT

DRUGS (9)
  1. RITUXIMAB [Suspect]
     Active Substance: RITUXIMAB
     Indication: Diffuse large B-cell lymphoma
     Dosage: FIRST LINE SYSTEMIC TREATMENT WITH R-CHOP
     Dates: start: 20211231, end: 20220415
  2. RITUXIMAB [Suspect]
     Active Substance: RITUXIMAB
     Dosage: SECOND LINE SYSTEMIC TREATMENT WITH R-GDP
     Dates: start: 20220819, end: 20220910
  3. CISPLATIN [Suspect]
     Active Substance: CISPLATIN
     Indication: Diffuse large B-cell lymphoma
     Dosage: SECOND LINE SYSTEMIC TREATMENT WITH R-GDP
     Dates: start: 20220819, end: 20220910
  4. CYCLOPHOSPHAMIDE [Suspect]
     Active Substance: CYCLOPHOSPHAMIDE
     Indication: Diffuse large B-cell lymphoma
     Dosage: FIRST LINE SYSTEMIC TREATMENT WITH R-CHOP
     Dates: start: 20211231, end: 20220415
  5. DEXAMETHASONE [Suspect]
     Active Substance: DEXAMETHASONE
     Indication: Diffuse large B-cell lymphoma
     Dosage: SECOND LINE SYSTEMIC TREATMENT WITH R-GDP
     Dates: start: 20220819, end: 20220910
  6. DOXORUBICIN HYDROCHLORIDE [Suspect]
     Active Substance: DOXORUBICIN HYDROCHLORIDE
     Indication: Diffuse large B-cell lymphoma
     Dosage: FIRST LINE SYSTEMIC TREATMENT WITH R-CHOP
     Dates: start: 20211231, end: 20220415
  7. GEMCITABINE [Suspect]
     Active Substance: GEMCITABINE
     Indication: Diffuse large B-cell lymphoma
     Dosage: SECOND LINE SYSTEMIC TREATMENT WITH R-GDP
     Dates: start: 20220819, end: 20220910
  8. PREDNISONE [Suspect]
     Active Substance: PREDNISONE
     Indication: Diffuse large B-cell lymphoma
     Dosage: FIRST LINE SYSTEMIC TREATMENT WITH R-CHOP
     Dates: start: 20211231, end: 20220415
  9. VINCRISTINE [Suspect]
     Active Substance: VINCRISTINE
     Indication: Diffuse large B-cell lymphoma
     Dosage: FIRST LINE SYSTEMIC TREATMENT WITH R-CHOP
     Dates: start: 20211231, end: 20220415

REACTIONS (2)
  - Disease progression [Unknown]
  - Product use issue [Unknown]
